FAERS Safety Report 17011534 (Version 3)
Quarter: 2021Q3

REPORT INFORMATION
  Report Type: Report from Study
  Country: JP (occurrence: JP)
  Receive Date: 20191108
  Receipt Date: 20210902
  Transmission Date: 20211014
  Serious: Yes (Hospitalization)
  Sender: FDA-Public Use
  Company Number: JP-BIOGEN-2019BI00804758

PATIENT
  Age: 39 Year
  Sex: Female
  Weight: 47 kg

DRUGS (4)
  1. TYSABRI [Suspect]
     Active Substance: NATALIZUMAB
     Indication: SECONDARY PROGRESSIVE MULTIPLE SCLEROSIS
     Route: 050
     Dates: start: 20171205
  2. BAYASPIRIN [Concomitant]
     Active Substance: ASPIRIN
     Route: 050
     Dates: start: 20140508, end: 20171210
  3. ZETIA [Concomitant]
     Active Substance: EZETIMIBE
     Indication: HYPERLIPIDAEMIA
     Route: 050
     Dates: start: 20140508
  4. CRESTOR [Concomitant]
     Active Substance: ROSUVASTATIN CALCIUM
     Indication: HYPERLIPIDAEMIA
     Route: 050
     Dates: start: 20140508

REACTIONS (5)
  - Off label use [Unknown]
  - Hepatic function abnormal [Recovered/Resolved]
  - Viral infection [Unknown]
  - Multiple sclerosis relapse [Not Recovered/Not Resolved]
  - Pyrexia [Recovered/Resolved]

NARRATIVE: CASE EVENT DATE: 201810
